FAERS Safety Report 5248725-2 (Version None)
Quarter: 2007Q1

REPORT INFORMATION
  Report Type: 
  Country: None (occurrence: None)
  Receive Date: 20070223
  Receipt Date: 20070213
  Transmission Date: 20070707
  Serious: Yes (Life-Threatening, Other)
  Sender: FDA-Public Use
  Company Number: B0458860A

PATIENT

DRUGS (14)
  1. BUSULPHAN (BUSULFAN) [Suspect]
     Indication: MANTLE CELL LYMPHOMA
     Dosage: 1 MG/KG/SEE DOSAGE TEXT/ORAL
     Route: 048
  2. MELPHALAN (FORMULATION UNKNOWN) (MELPHALAN) [Suspect]
     Indication: MANTLE CELL LYMPHOMA
     Dosage: 140 MG/M2/SEE DOSAGE TEXT/UNKNOWN
  3. CALCIUM FOLINATE (FORMULATION UNKNOWN) (CALCIUM FOLINATE) [Suspect]
     Indication: MANTLE CELL LYMPHOMA
  4. TRIMETHOPRIM [Suspect]
     Indication: ANTIBIOTIC PROPHYLAXIS
     Dosage: 160 MG/SEE DOSAGE TEXT/UNKNOWN
  5. RITUXIMAB (FORMULATION UNKNOWN) (RITUXIMAB) [Suspect]
     Indication: MANTLE CELL LYMPHOMA
     Dosage: 375 MG/M2/SEE DOSAGE TEXT/UNKNOWN
  6. VINCRISTINE [Suspect]
     Indication: MANTLE CELL LYMPHOMA
     Dosage: 1.4 MG/M2/SEE DOSAGE TEXT/UNKNOWN
  7. DEXAMETHASONE [Suspect]
     Indication: MANTLE CELL LYMPHOMA
     Dosage: UNK/SEE DOSAGE TEXT/ORAL
     Route: 048
  8. METHOTREXATE [Suspect]
     Indication: MANTLE CELL LYMPHOMA
     Dosage: UNK/SEE DOSAGE TEXT/INTRAVENO
     Route: 042
  9. CYCLOPHOSPHAMIDE [Suspect]
     Indication: MANTLE CELL LYMPHOMA
     Dosage: 300 MG/M2/SEE DOSAGE TEXT/UNKNOWN
  10. CYTARABINE [Suspect]
     Indication: MANTLE CELL LYMPHOMA
     Dosage: 3 G/M2/ SEE DOSAGE TEXT/UNKNOWN
  11. GRANULOCYTE COL.STIM.FACT INJECTION (GRANULOCYTE COL.STIM.FACT) [Suspect]
     Indication: MANTLE CELL LYMPHOMA
     Dosage: 10 UG/KG/SEE DOSAGE TEXT/SUBCUTANE
     Route: 058
  12. FLUCONAZOLE [Suspect]
     Indication: ANTIBIOTIC PROPHYLAXIS
  13. SULFAMETHOXAZOLE [Suspect]
     Indication: ANTIBIOTIC PROPHYLAXIS
     Dosage: 800 MG/SEE DOSAGE TEXT/UNKNOWN
  14. DOXORUBICIN HCL [Suspect]
     Indication: MANTLE CELL LYMPHOMA
     Dosage: 50 MG/M2/SEE DOSAGE TEXT/UNKNOWN

REACTIONS (2)
  - GASTROINTESTINAL HAEMORRHAGE [None]
  - THROMBOCYTOPENIA [None]
